FAERS Safety Report 18504114 (Version 4)
Quarter: 2023Q1

REPORT INFORMATION
  Report Type: Report from Study
  Country: UY (occurrence: UY)
  Receive Date: 20201113
  Receipt Date: 20230113
  Transmission Date: 20230417
  Serious: Yes (Hospitalization)
  Sender: FDA-Public Use
  Company Number: UY-TAKEDA-2020TUS049294

PATIENT
  Age: 20 Year
  Sex: Male

DRUGS (2)
  1. VELAGLUCERASE ALFA [Suspect]
     Active Substance: VELAGLUCERASE ALFA
     Indication: Gaucher^s disease
     Dosage: 7 DOSAGE FORM, Q2WEEKS
     Route: 042
     Dates: start: 202008
  2. VELAGLUCERASE ALFA [Suspect]
     Active Substance: VELAGLUCERASE ALFA
     Dosage: 7 DOSAGE FORM
     Route: 042
     Dates: start: 202010

REACTIONS (5)
  - Bacterial infection [Unknown]
  - Post procedural infection [Unknown]
  - Mass [Unknown]
  - Pyrexia [Unknown]
  - Pain [Unknown]

NARRATIVE: CASE EVENT DATE: 20201028
